FAERS Safety Report 20768483 (Version 2)
Quarter: 2022Q3

REPORT INFORMATION
  Report Type: Spontaneous
  Country: US (occurrence: US)
  Receive Date: 20220429
  Receipt Date: 20220825
  Transmission Date: 20221027
  Serious: Yes (Other)
  Sender: FDA-Public Use
  Company Number: US-SUN PHARMACEUTICAL INDUSTRIES LTD-2020R1-234833

PATIENT
  Age: 2 Year
  Sex: Female

DRUGS (1)
  1. CLONIDINE [Suspect]
     Active Substance: CLONIDINE
     Indication: Product used for unknown indication
     Dosage: 10-FOLD INCREASE IN HER PRESCRIBED DOSE
     Route: 065

REACTIONS (5)
  - Toxicity to various agents [Unknown]
  - Mental status changes [Recovering/Resolving]
  - Overdose [Unknown]
  - Hypertonia [Unknown]
  - Hyperreflexia [Unknown]
